FAERS Safety Report 24022693 (Version 1)
Quarter: 2024Q2

REPORT INFORMATION
  Report Type: Report from Study
  Country: TN (occurrence: TN)
  Receive Date: 20240627
  Receipt Date: 20240627
  Transmission Date: 20240716
  Serious: No
  Sender: FDA-Public Use
  Company Number: TN-ROCHE-3579773

PATIENT
  Sex: Female

DRUGS (1)
  1. ENTRECTINIB [Suspect]
     Active Substance: ENTRECTINIB
     Indication: Product used for unknown indication
     Route: 065

REACTIONS (1)
  - Maternal exposure timing unspecified [Unknown]
